FAERS Safety Report 14261354 (Version 2)
Quarter: 2018Q1

REPORT INFORMATION
  Report Type: Spontaneous
  Country: AU (occurrence: AU)
  Receive Date: 20171208
  Receipt Date: 20180205
  Transmission Date: 20180508
  Serious: Yes (Other)
  Sender: FDA-Public Use
  Company Number: AU-AMGEN-AUSSP2017177319

PATIENT
  Age: 70 Year
  Sex: Female

DRUGS (1)
  1. PROLIA [Suspect]
     Active Substance: DENOSUMAB
     Indication: OSTEOPOROSIS
     Dosage: UNK
     Route: 065
     Dates: start: 201606

REACTIONS (3)
  - Nipple disorder [Not Recovered/Not Resolved]
  - Bone pain [Recovered/Resolved]
  - Spondylitis [Recovering/Resolving]

NARRATIVE: CASE EVENT DATE: 20160617
